FAERS Safety Report 23990746 (Version 3)
Quarter: 2024Q3

REPORT INFORMATION
  Report Type: Spontaneous
  Country: IT (occurrence: IT)
  Receive Date: 20240619
  Receipt Date: 20240906
  Transmission Date: 20241017
  Serious: Yes (Death, Hospitalization, Other)
  Sender: BIOVITRUM
  Company Number: IT-BIOVITRUM-2024-IT-008811

PATIENT
  Sex: Male

DRUGS (13)
  1. GAMIFANT [Suspect]
     Active Substance: EMAPALUMAB-LZSG
     Indication: Haemophagocytic lymphohistiocytosis
     Dates: start: 20240522
  2. GAMIFANT [Suspect]
     Active Substance: EMAPALUMAB-LZSG
     Indication: Lymphoma
     Dates: start: 20240527
  3. GAMIFANT [Suspect]
     Active Substance: EMAPALUMAB-LZSG
     Dates: start: 20240530
  4. GAMIFANT [Suspect]
     Active Substance: EMAPALUMAB-LZSG
     Dates: start: 20240603
  5. GAMIFANT [Suspect]
     Active Substance: EMAPALUMAB-LZSG
     Dates: start: 20240606
  6. GAMIFANT [Suspect]
     Active Substance: EMAPALUMAB-LZSG
     Dates: start: 20240524
  7. DEXAMETHASONE [Concomitant]
     Active Substance: DEXAMETHASONE
     Indication: Product used for unknown indication
  8. ANAKINRA [Concomitant]
     Active Substance: ANAKINRA
     Indication: Product used for unknown indication
     Dosage: 4 TIMES A DAY
  9. ACYCLOVIR [Concomitant]
     Active Substance: ACYCLOVIR
     Indication: Product used for unknown indication
  10. BACTRIM [Concomitant]
     Active Substance: SULFAMETHOXAZOLE\TRIMETHOPRIM
     Indication: Product used for unknown indication
  11. FOLIC ACID [Concomitant]
     Active Substance: FOLIC ACID
     Indication: Product used for unknown indication
  12. ALLOPURINOL [Concomitant]
     Active Substance: ALLOPURINOL
     Indication: Product used for unknown indication
  13. UNSPECIFIED INGREDIENT [Concomitant]
     Active Substance: UNSPECIFIED INGREDIENT
     Indication: Product used for unknown indication

REACTIONS (2)
  - Multiple organ dysfunction syndrome [Fatal]
  - Off label use [Unknown]

NARRATIVE: CASE EVENT DATE: 20240610
